FAERS Safety Report 24987185 (Version 3)
Quarter: 2025Q1

REPORT INFORMATION
  Report Type: Spontaneous
  Country: GB (occurrence: GB)
  Receive Date: 20250219
  Receipt Date: 20250227
  Transmission Date: 20250409
  Serious: Yes (Death, Other)
  Sender: NOVARTIS
  Company Number: GB-002147023-NVSC2025GB027523

PATIENT
  Age: 15 Year
  Sex: Female
  Weight: 65 kg

DRUGS (4)
  1. RYDAPT [Suspect]
     Active Substance: MIDOSTAURIN
     Indication: Acute myeloid leukaemia
     Dosage: 50 MG, BID(FOR 14 DAYS)
     Route: 048
     Dates: start: 20250205, end: 20250215
  2. MITOXANTRONE [Concomitant]
     Active Substance: MITOXANTRONE HYDROCHLORIDE
     Indication: Product used for unknown indication
     Route: 065
  3. CYTARABINE [Concomitant]
     Active Substance: CYTARABINE
     Indication: Product used for unknown indication
     Route: 065
  4. GEMTUZUMAB OZOGAMICIN [Concomitant]
     Active Substance: GEMTUZUMAB OZOGAMICIN
     Indication: Product used for unknown indication
     Route: 065

REACTIONS (26)
  - Acute myeloid leukaemia [Fatal]
  - Toxic encephalopathy [Fatal]
  - Leukoencephalopathy [Fatal]
  - Brain herniation [Unknown]
  - Depressed level of consciousness [Unknown]
  - Febrile neutropenia [Not Recovered/Not Resolved]
  - Brain oedema [Unknown]
  - Posterior reversible encephalopathy syndrome [Unknown]
  - Neutropenic sepsis [Unknown]
  - Thrombosis [Not Recovered/Not Resolved]
  - Mucosal inflammation [Not Recovered/Not Resolved]
  - Confusional state [Not Recovered/Not Resolved]
  - Neurological decompensation [Unknown]
  - Candida infection [Unknown]
  - Pyrexia [Not Recovered/Not Resolved]
  - Nausea [Not Recovered/Not Resolved]
  - Vomiting [Not Recovered/Not Resolved]
  - Tachycardia [Not Recovered/Not Resolved]
  - Tachypnoea [Not Recovered/Not Resolved]
  - Coma scale abnormal [Not Recovered/Not Resolved]
  - Movement disorder [Not Recovered/Not Resolved]
  - Dysphonia [Not Recovered/Not Resolved]
  - Posture abnormal [Not Recovered/Not Resolved]
  - Hypertension [Not Recovered/Not Resolved]
  - Bradycardia [Not Recovered/Not Resolved]
  - Mydriasis [Unknown]

NARRATIVE: CASE EVENT DATE: 20250205
